FAERS Safety Report 13568895 (Version 3)
Quarter: 2017Q3

REPORT INFORMATION
  Report Type: Spontaneous
  Country: US (occurrence: US)
  Receive Date: 20170522
  Receipt Date: 20170823
  Transmission Date: 20171127
  Serious: Yes (Other)
  Sender: FDA-Public Use
  Company Number: US-BAYER-2017-096509

PATIENT
  Age: 29 Year
  Sex: Female
  Weight: 76.19 kg

DRUGS (3)
  1. MIRENA [Suspect]
     Active Substance: LEVONORGESTREL
     Indication: CONTRACEPTION
     Dosage: 20 MG/24HR, CONT
     Route: 015
     Dates: start: 20170515, end: 20170515
  2. ALEVE [Concomitant]
     Active Substance: NAPROXEN SODIUM
  3. LIDOCAINE. [Concomitant]
     Active Substance: LIDOCAINE

REACTIONS (2)
  - Complication of device insertion [None]
  - Embedded device [Recovered/Resolved]

NARRATIVE: CASE EVENT DATE: 20170515
